FAERS Safety Report 9104617 (Version 1)
Quarter: 2013Q1

REPORT INFORMATION
  Report Type: Spontaneous
  Country: IL (occurrence: IL)
  Receive Date: 20130219
  Receipt Date: 20130219
  Transmission Date: 20140127
  Serious: Yes (Other)
  Sender: FDA-Public Use
  Company Number: IL-MERCK-1302ISR006247

PATIENT
  Age: 83 Year
  Sex: Female

DRUGS (5)
  1. SINEMET CR [Suspect]
     Indication: TREMOR
     Dosage: UNK, TID
     Route: 048
     Dates: start: 20100211
  2. IRON (UNSPECIFIED) [Concomitant]
     Dosage: UNK
  3. CALTRATE [Concomitant]
     Dosage: 25 MG, QD
     Route: 048
  4. ALENDRONATE MSD [Concomitant]
     Dosage: 70 MG, QW
     Route: 048
  5. CIPRALEX [Concomitant]
     Dosage: UNK

REACTIONS (8)
  - Epilepsy [Unknown]
  - Loss of consciousness [Not Recovered/Not Resolved]
  - Feeling cold [Not Recovered/Not Resolved]
  - Tremor [Not Recovered/Not Resolved]
  - Dyspnoea [Not Recovered/Not Resolved]
  - Dyspnoea [Not Recovered/Not Resolved]
  - Dizziness [Not Recovered/Not Resolved]
  - Nausea [Not Recovered/Not Resolved]
